FAERS Safety Report 7364877-2 (Version None)
Quarter: 2011Q1

REPORT INFORMATION
  Report Type: 
  Country: None (occurrence: None)
  Receive Date: 20110316
  Receipt Date: 20110316
  Transmission Date: 20110831
  Serious: Yes (Death, Hospitalization)
  Sender: FDA-Public Use
  Company Number: None

PATIENT
  Age: 76 Year
  Sex: Female
  Weight: 129 kg

DRUGS (2)
  1. PEMETREXED [Suspect]
     Indication: NON-SMALL CELL LUNG CANCER
     Dosage: 375 MG/M2, Q 3 WEEKS IV
     Route: 042
     Dates: start: 20110210, end: 20110303
  2. TEMSIROLIMUS [Suspect]
     Indication: NON-SMALL CELL LUNG CANCER
     Dosage: 15 MG, WEEKLY, IV
     Route: 042
     Dates: start: 20110210, end: 20110303

REACTIONS (3)
  - PULMONARY EMBOLISM [None]
  - RESPIRATORY FAILURE [None]
  - PLEURAL EFFUSION [None]
